FAERS Safety Report 15225102 (Version 1)
Quarter: 2018Q3

REPORT INFORMATION
  Report Type: Spontaneous
  Country: US (occurrence: US)
  Receive Date: 20180801
  Receipt Date: 20180801
  Transmission Date: 20181010
  Serious: Yes (Other)
  Sender: FDA-Public Use
  Company Number: US-AMGEN-USASP2018102026

PATIENT
  Age: 55 Year
  Sex: Female

DRUGS (1)
  1. ENBREL [Suspect]
     Active Substance: ETANERCEPT
     Indication: PSORIATIC ARTHROPATHY
     Dosage: 50 MG, QWK
     Route: 058
     Dates: start: 201710

REACTIONS (10)
  - Injection site warmth [Unknown]
  - Incorrect dose administered by device [Unknown]
  - Pain in extremity [Unknown]
  - Wrong technique in product usage process [Unknown]
  - Injection site pain [Unknown]
  - Injection site haemorrhage [Unknown]
  - Breast conserving surgery [Unknown]
  - Biopsy [Unknown]
  - Injection site mass [Unknown]
  - Stress [Unknown]

NARRATIVE: CASE EVENT DATE: 2018
